FAERS Safety Report 8073687-2 (Version None)
Quarter: 2012Q1

REPORT INFORMATION
  Report Type: 
  Country: None (occurrence: None)
  Receive Date: 20120126
  Receipt Date: 20120120
  Transmission Date: 20120608
  Serious: Yes (Other)
  Sender: FDA-Public Use
  Company Number: US-PFIZER INC-2012017512

PATIENT
  Sex: Male
  Weight: 41 kg

DRUGS (5)
  1. PERCODAN-DEMI [Concomitant]
     Indication: PAIN
     Dosage: UNK
  2. CREON [Concomitant]
     Indication: DYSPEPSIA
     Dosage: 24000 IU, UNK
  3. CHANTIX [Suspect]
     Dosage: UNK
     Dates: start: 20120101, end: 20120101
  4. CHANTIX [Suspect]
     Indication: SMOKING CESSATION THERAPY
     Dosage: 0.5 MG, DAILY
     Dates: start: 20120101, end: 20120101
  5. LORAZEPAM [Concomitant]
     Indication: SLEEP DISORDER
     Dosage: 25 MG, DAILY

REACTIONS (7)
  - ANTISOCIAL BEHAVIOUR [None]
  - CONSTIPATION [None]
  - DEPRESSION [None]
  - FEMUR FRACTURE [None]
  - HIP FRACTURE [None]
  - SUICIDAL IDEATION [None]
  - FALL [None]
